FAERS Safety Report 19001539 (Version 1)
Quarter: 2021Q1

REPORT INFORMATION
  Report Type: Spontaneous
  Country: US (occurrence: US)
  Receive Date: 20210312
  Receipt Date: 20210312
  Transmission Date: 20210420
  Serious: No
  Sender: FDA-Public Use
  Company Number: US-FARMAPROD-202010-1347

PATIENT
  Sex: Female
  Weight: 84.9 kg

DRUGS (10)
  1. CALCIUM [Concomitant]
     Active Substance: CALCIUM
     Dosage: 500 (1250) MG
  2. VITAMINE C [Concomitant]
     Active Substance: ASCORBIC ACID
  3. CLARITIN [Concomitant]
     Active Substance: LORATADINE
  4. ADVIL [Concomitant]
     Active Substance: IBUPROFEN
  5. LISINOPRIL. [Concomitant]
     Active Substance: LISINOPRIL
  6. B12 ACTIVE [Concomitant]
  7. OXERVATE [Suspect]
     Active Substance: CENEGERMIN-BKBJ
     Indication: NEUROTROPHIC KERATOPATHY
     Route: 047
     Dates: start: 20200916
  8. LEVOTHYROXINE SODIUM. [Concomitant]
     Active Substance: LEVOTHYROXINE SODIUM
  9. TYLENOL [Concomitant]
     Active Substance: ACETAMINOPHEN
  10. VALACYCLOVIR [Concomitant]
     Active Substance: VALACYCLOVIR HYDROCHLORIDE

REACTIONS (1)
  - Eye pain [Unknown]
